FAERS Safety Report 4877519-2 (Version None)
Quarter: 2006Q1

REPORT INFORMATION
  Report Type: 
  Country: None (occurrence: None)
  Receive Date: 20060109
  Receipt Date: 20051221
  Transmission Date: 20060701
  Serious: Yes (Death)
  Sender: FDA-Public Use
  Company Number: 2006MP000011

PATIENT
  Age: 70 Year
  Sex: Female

DRUGS (3)
  1. AGGRASTAT [Suspect]
     Indication: CEREBROVASCULAR ACCIDENT
     Dosage: 0.4 NG/KG/MIN; UNKNOWN; IV
     Route: 042
  2. AGGRASTAT [Suspect]
     Indication: CEREBROVASCULAR ACCIDENT
     Dosage: 0.1 UG/KG/MIN; UNKNOWN; IV
     Route: 042
  3. HEPARIN [Suspect]
     Indication: CEREBROVASCULAR ACCIDENT
     Dosage: 1000 IU/HR; UNKNOWN; IV
     Route: 042

REACTIONS (2)
  - CEREBRAL HAEMORRHAGE [None]
  - SEPTIC SHOCK [None]
